FAERS Safety Report 24321340 (Version 1)
Quarter: 2024Q3

REPORT INFORMATION
  Report Type: Spontaneous
  Country: AU (occurrence: AU)
  Receive Date: 20240916
  Receipt Date: 20240916
  Transmission Date: 20241017
  Serious: Yes (Hospitalization)
  Sender: NOVO NORDISK
  Company Number: None

PATIENT
  Age: 78 Year
  Sex: Female

DRUGS (1)
  1. SEMAGLUTIDE [Suspect]
     Active Substance: SEMAGLUTIDE
     Indication: Type 2 diabetes mellitus
     Dosage: ONCE WEEKLY
     Dates: start: 2023

REACTIONS (4)
  - Bacteraemia [Unknown]
  - Pancreatitis necrotising [Recovering/Resolving]
  - Pyelonephritis [Unknown]
  - Splenic vein thrombosis [Unknown]

NARRATIVE: CASE EVENT DATE: 20230917
